FAERS Safety Report 11552865 (Version 2)
Quarter: 2015Q3

REPORT INFORMATION
  Report Type: Spontaneous
  Country: US (occurrence: US)
  Receive Date: 20150925
  Receipt Date: 20150928
  Transmission Date: 20151125
  Serious: Yes (Life-Threatening, Hospitalization, Other)
  Sender: FDA-Public Use
  Company Number: US-ELI_LILLY_AND_COMPANY-US201509006997

PATIENT
  Sex: Female

DRUGS (25)
  1. HYDROCODONE BITARTRATE AND ACETAMINOPHEN [Concomitant]
     Active Substance: ACETAMINOPHEN\HYDROCODONE BITARTRATE
     Dosage: UNK, UNKNOWN
     Route: 065
  2. PROMETAZINA                        /00033001/ [Concomitant]
     Dosage: UNK, UNKNOWN
     Route: 065
  3. MELATONIN [Concomitant]
     Active Substance: MELATONIN
     Dosage: 1 DF, EACH EVENING
     Route: 065
  4. FENOFIBRATE. [Concomitant]
     Active Substance: FENOFIBRATE
     Dosage: 1 DF, QD
     Route: 065
  5. KLOR-CON [Concomitant]
     Active Substance: POTASSIUM CHLORIDE
     Dosage: 2 DF, EACH MORNING
     Route: 065
  6. OXYGEN. [Concomitant]
     Active Substance: OXYGEN
     Dosage: UNK, EACH EVENING
     Route: 065
  7. RENOVA                             /00020001/ [Concomitant]
     Dosage: UNK, UNKNOWN
     Route: 065
  8. RECLAST [Suspect]
     Active Substance: ZOLEDRONIC ACID
     Indication: PRODUCT USED FOR UNKNOWN INDICATION
     Dosage: UNK, UNKNOWN
     Route: 065
     Dates: start: 20140101
  9. SPIRIVA [Concomitant]
     Active Substance: TIOTROPIUM BROMIDE MONOHYDRATE
     Dosage: 1 DF, QD
     Route: 065
  10. VENTOLIN [Concomitant]
     Active Substance: ALBUTEROL SULFATE
     Dosage: UNK, UNKNOWN
     Route: 065
  11. ZETIA [Concomitant]
     Active Substance: EZETIMIBE
     Dosage: 10 MG, QD
     Route: 065
  12. ACTONEL [Suspect]
     Active Substance: RISEDRONATE SODIUM
     Indication: PRODUCT USED FOR UNKNOWN INDICATION
     Dosage: UNK, UNKNOWN
     Route: 065
  13. CELEXIA [Concomitant]
     Dosage: 40 MG, QD
     Route: 065
  14. ALBUTEROL SULFATE. [Concomitant]
     Active Substance: ALBUTEROL SULFATE
     Dosage: UNK, UNKNOWN
     Route: 065
  15. ARICEPT [Concomitant]
     Active Substance: DONEPEZIL HYDROCHLORIDE
     Dosage: 10 MG, QD
     Route: 065
  16. VITAMIN D [Concomitant]
     Active Substance: CHOLECALCIFEROL
     Dosage: 1 DF, WEEKLY (1/W)
     Route: 065
  17. PRAVASTATIN [Concomitant]
     Active Substance: PRAVASTATIN\PRAVASTATIN SODIUM
     Dosage: 10 MG, EACH EVENING
     Route: 065
  18. TERIPARATIDE [Suspect]
     Active Substance: TERIPARATIDE
     Dosage: 20 UG, QD
     Route: 065
     Dates: start: 20150903
  19. FLECTOR                            /00372302/ [Concomitant]
     Active Substance: DICLOFENAC SODIUM
     Dosage: 2 DF, QD
     Route: 065
  20. CALCIUM [Concomitant]
     Active Substance: CALCIUM
     Dosage: 2000 MG, QD
     Route: 065
  21. PHENOBARBITAL. [Suspect]
     Active Substance: PHENOBARBITAL
     Indication: PRODUCT USED FOR UNKNOWN INDICATION
     Dosage: UNK, UNKNOWN
     Route: 065
  22. MELOXICAM. [Concomitant]
     Active Substance: MELOXICAM
     Dosage: 1 DF, QD
     Route: 065
  23. LASIX [Concomitant]
     Active Substance: FUROSEMIDE
     Dosage: 2 DF, EACH MORNING
     Route: 065
  24. TERIPARATIDE [Suspect]
     Active Substance: TERIPARATIDE
     Indication: OSTEOPOROSIS
     Dosage: 20 UG, QD
     Route: 065
     Dates: start: 2010, end: 201105
  25. FLONASE                            /00908302/ [Concomitant]
     Active Substance: MOMETASONE FUROATE
     Dosage: 2 DF, QD
     Route: 065

REACTIONS (16)
  - Seizure [Unknown]
  - Coma [Unknown]
  - Wrist fracture [Unknown]
  - Chronic obstructive pulmonary disease [Unknown]
  - Bronchitis [Unknown]
  - Pneumonia [Unknown]
  - Pelvic fracture [Unknown]
  - Respiratory arrest [Unknown]
  - Wrist fracture [Unknown]
  - Fall [Unknown]
  - Paralysis [Unknown]
  - Bone density decreased [Unknown]
  - Drug dose omission [Not Recovered/Not Resolved]
  - Overdose [Unknown]
  - Aphasia [Unknown]
  - Wrist fracture [Unknown]

NARRATIVE: CASE EVENT DATE: 20110325
